FAERS Safety Report 12629319 (Version 1)
Quarter: 2016Q3

REPORT INFORMATION
  Report Type: Report from Study
  Country: US (occurrence: US)
  Receive Date: 20160808
  Receipt Date: 20160808
  Transmission Date: 20161109
  Serious: No
  Sender: FDA-Public Use
  Company Number: US-009507513-1607USA008001

PATIENT
  Age: 80 Year
  Sex: Female

DRUGS (2)
  1. FOSAMAX [Suspect]
     Active Substance: ALENDRONATE SODIUM
     Dosage: UNK
     Route: 048
     Dates: end: 201604
  2. HUMIRA [Suspect]
     Active Substance: ADALIMUMAB
     Indication: PSORIASIS
     Dosage: 40 MG, ONE IN 2 WEEKS
     Route: 058
     Dates: start: 2014

REACTIONS (1)
  - Dental caries [Unknown]

NARRATIVE: CASE EVENT DATE: 201604
